FAERS Safety Report 14185687 (Version 4)
Quarter: 2017Q4

REPORT INFORMATION
  Report Type: Spontaneous
  Country: US (occurrence: US)
  Receive Date: 20171114
  Receipt Date: 20171221
  Transmission Date: 20180321
  Serious: Yes (Other)
  Sender: FDA-Public Use
  Company Number: US-PFIZER INC-2017472210

PATIENT
  Age: 78 Year
  Sex: Female
  Weight: 53.52 kg

DRUGS (5)
  1. AMLODIPINE [Concomitant]
     Active Substance: AMLODIPINE BESYLATE
     Dosage: UNK
  2. SUTENT [Suspect]
     Active Substance: SUNITINIB MALATE
     Indication: METASTATIC RENAL CELL CARCINOMA
     Dosage: 50 MG, CYCLIC (2 WEEKS ON/1 WEEK OFF)
     Dates: start: 20171017, end: 20171205
  3. VITAMIN B12 [Concomitant]
     Active Substance: CYANOCOBALAMIN
     Dosage: UNK
  4. PRILOSEC [Concomitant]
     Active Substance: OMEPRAZOLE MAGNESIUM
     Dosage: UNK
  5. VITAMIN D [Concomitant]
     Active Substance: CHOLECALCIFEROL
     Dosage: UNK

REACTIONS (9)
  - Diarrhoea [Recovering/Resolving]
  - Dehydration [Unknown]
  - Dizziness [Unknown]
  - Full blood count decreased [Recovered/Resolved]
  - Dysgeusia [Unknown]
  - Haematochezia [Unknown]
  - Loss of consciousness [Unknown]
  - Weight decreased [Unknown]
  - Skin irritation [Unknown]

NARRATIVE: CASE EVENT DATE: 2017
